FAERS Safety Report 6856612-9 (Version None)
Quarter: 2010Q3

REPORT INFORMATION
  Report Type: 
  Country: None (occurrence: None)
  Receive Date: 20100716
  Receipt Date: 20100716
  Transmission Date: 20110219
  Serious: Yes (Other)
  Sender: FDA-Public Use
  Company Number: None

PATIENT
  Age: 61 Year
  Sex: Female
  Weight: 77.3 kg

DRUGS (1)
  1. PRAVACHOL/PRAVASTATIN SODIUM 20 MG PO TEVA USA [Suspect]
     Indication: BLOOD CHOLESTEROL
     Dosage: 20 MG ONCE D AILY MOUTH
     Route: 048
     Dates: start: 20100510, end: 20100621

REACTIONS (8)
  - ABNORMAL BEHAVIOUR [None]
  - ACTIVITIES OF DAILY LIVING IMPAIRED [None]
  - DYSPEPSIA [None]
  - FAECES DISCOLOURED [None]
  - FATIGUE [None]
  - IMPAIRED WORK ABILITY [None]
  - INFLUENZA LIKE ILLNESS [None]
  - PYREXIA [None]
